FAERS Safety Report 6544170-8 (Version None)
Quarter: 2010Q1

REPORT INFORMATION
  Report Type: 
  Country: None (occurrence: None)
  Receive Date: 20100120
  Receipt Date: 20090720
  Transmission Date: 20100710
  Serious: No
  Sender: FDA-Public Use
  Company Number: US-ALLERGAN-0908998US

PATIENT
  Age: 77 Year
  Sex: Male

DRUGS (7)
  1. PRED FORTE [Suspect]
     Indication: POSTOPERATIVE CARE
     Dosage: 1 GTT, QID
     Route: 047
     Dates: start: 20090507, end: 20090619
  2. PRED FORTE [Suspect]
     Dosage: 1 GTT, QID
     Route: 047
     Dates: start: 20090521, end: 20090619
  3. MINOXIDIL [Concomitant]
     Indication: BLOOD PRESSURE
  4. ACULAR LS [Concomitant]
     Indication: POSTOPERATIVE CARE
  5. ANESTHESIA [Concomitant]
     Indication: ANAESTHESIA
     Dosage: UNK, SINGLE
     Route: 042
  6. ANESTHESIA [Concomitant]
     Indication: INTRAOPERATIVE CARE
  7. IQUIX [Concomitant]
     Indication: PREOPERATIVE CARE

REACTIONS (3)
  - DYSGEUSIA [None]
  - MUSCULAR WEAKNESS [None]
  - SKIN HYPERPIGMENTATION [None]
